FAERS Safety Report 9358853 (Version 1)
Quarter: 2013Q2

REPORT INFORMATION
  Report Type: Report from Study
  Country: TR (occurrence: TR)
  Receive Date: 20130620
  Receipt Date: 20130620
  Transmission Date: 20140414
  Serious: Yes (Other)
  Sender: FDA-Public Use
  Company Number: TR-BAYER-2013-072174

PATIENT
  Age: 27 Year
  Sex: Female
  Weight: 42 kg

DRUGS (1)
  1. BETAFERON [Suspect]
     Indication: MULTIPLE SCLEROSIS
     Dosage: UNK
     Dates: start: 20110112, end: 20130526

REACTIONS (4)
  - General physical health deterioration [None]
  - Gait disturbance [Not Recovered/Not Resolved]
  - Abnormal loss of weight [Not Recovered/Not Resolved]
  - Mental disorder [None]
